FAERS Safety Report 24007252 (Version 1)
Quarter: 2024Q2

REPORT INFORMATION
  Report Type: Report from Study
  Country: US (occurrence: US)
  Receive Date: 20240624
  Receipt Date: 20240624
  Transmission Date: 20240716
  Serious: Yes (Other)
  Sender: FDA-Public Use
  Company Number: US-ABBVIE-5806778

PATIENT
  Sex: Female

DRUGS (1)
  1. HUMIRA [Suspect]
     Active Substance: ADALIMUMAB
     Indication: Psoriatic arthropathy
     Route: 058
     Dates: start: 20081212

REACTIONS (7)
  - Sinus disorder [Unknown]
  - Oesophageal disorder [Recovered/Resolved]
  - Sinusitis [Recovering/Resolving]
  - Dysphagia [Unknown]
  - Aerophagia [Unknown]
  - Dental prosthesis placement [Unknown]
  - Sputum discoloured [Unknown]
